FAERS Safety Report 5847239-6 (Version None)
Quarter: 2008Q3

REPORT INFORMATION
  Report Type: 
  Country: None (occurrence: None)
  Receive Date: 20080815
  Receipt Date: 20080812
  Transmission Date: 20090109
  Serious: Yes (Other)
  Sender: FDA-Public Use
  Company Number: DE-BOEHRINGER INGELHEIM GMBH, GERMANY-2008-DE-04790DE

PATIENT
  Sex: Male

DRUGS (1)
  1. SIFROL 0,7 MG [Suspect]
     Dosage: 4X1/4 TABLETS

REACTIONS (1)
  - GLOMERULAR FILTRATION RATE DECREASED [None]
